FAERS Safety Report 14493044 (Version 1)
Quarter: 2018Q1

REPORT INFORMATION
  Report Type: Spontaneous
  Country: GB (occurrence: GB)
  Receive Date: 20180206
  Receipt Date: 20180206
  Transmission Date: 20180509
  Serious: Yes (Death)
  Sender: FDA-Public Use
  Company Number: PHHY2017GB200376

PATIENT
  Age: 23 Year
  Sex: Female

DRUGS (5)
  1. CODEINE PHOSPHATE [Suspect]
     Active Substance: CODEINE PHOSPHATE
     Indication: PRODUCT USED FOR UNKNOWN INDICATION
     Dosage: UNK
     Route: 065
  2. TRAMADOL. [Suspect]
     Active Substance: TRAMADOL
     Indication: PRODUCT USED FOR UNKNOWN INDICATION
     Dosage: UNK
     Route: 065
  3. SERTRALINE [Suspect]
     Active Substance: SERTRALINE HYDROCHLORIDE
     Indication: PRODUCT USED FOR UNKNOWN INDICATION
     Dosage: UNK
     Route: 065
  4. DIAZEPAM. [Suspect]
     Active Substance: DIAZEPAM
     Indication: PRODUCT USED FOR UNKNOWN INDICATION
     Route: 065
  5. PREGABALIN. [Suspect]
     Active Substance: PREGABALIN
     Indication: PRODUCT USED FOR UNKNOWN INDICATION
     Dosage: UNK
     Route: 065

REACTIONS (13)
  - Pneumonia [Fatal]
  - Dysarthria [Fatal]
  - Toxicity to various agents [Fatal]
  - Alcohol abuse [Fatal]
  - Feeling cold [Fatal]
  - Drug abuse [Fatal]
  - Gait disturbance [Fatal]
  - Drug dependence [Fatal]
  - Accidental overdose [Fatal]
  - Muscle tightness [Fatal]
  - Potentiating drug interaction [Fatal]
  - Cyanosis [Fatal]
  - Foaming at mouth [Fatal]

NARRATIVE: CASE EVENT DATE: 20160809
